FAERS Safety Report 5453688-0 (Version None)
Quarter: 2007Q3

REPORT INFORMATION
  Report Type: 
  Country: None (occurrence: None)
  Receive Date: 20070917
  Receipt Date: 20070907
  Transmission Date: 20080115
  Serious: Yes (Hospitalization)
  Sender: FDA-Public Use
  Company Number: US-NOVOPROD-267336

PATIENT

DRUGS (3)
  1. NOVOLOG [Suspect]
     Indication: DIABETES MELLITUS
     Dosage: 30 IU, TID
     Route: 058
     Dates: start: 20060101
  2. NOVOLOG [Suspect]
     Dosage: 35 IU, TID
     Route: 058
     Dates: start: 20070801
  3. METHADONE HCL [Concomitant]
     Indication: DRUG USE FOR UNKNOWN INDICATION

REACTIONS (1)
  - MUSCULOSKELETAL CHEST PAIN [None]
